FAERS Safety Report 26151282 (Version 1)
Quarter: 2025Q4

REPORT INFORMATION
  Report Type: Spontaneous
  Country: CN (occurrence: CN)
  Receive Date: 20251212
  Receipt Date: 20251212
  Transmission Date: 20260117
  Serious: Yes (Other)
  Sender: PFIZER
  Company Number: CN-PFIZER INC-PV202500143520

PATIENT
  Age: 5 Year
  Sex: Female
  Weight: 18 kg

DRUGS (1)
  1. AZITHROMYCIN [Suspect]
     Active Substance: AZITHROMYCIN
     Indication: Mycoplasma infection
     Dosage: 0.2 G, 1X/DAY
     Route: 048
     Dates: start: 20251127, end: 20251127

REACTIONS (1)
  - Conjunctivitis [Recovering/Resolving]

NARRATIVE: CASE EVENT DATE: 20251128
